FAERS Safety Report 8846444 (Version 1)
Quarter: 2012Q4

REPORT INFORMATION
  Report Type: 
  Country: US (occurrence: US)
  Receive Date: 20121017
  Receipt Date: 20121017
  Transmission Date: 20130627
  Serious: No
  Sender: FDA-Public Use
  Company Number: US-BAYER-2012-104886

PATIENT
  Age: 74 Year
  Sex: Female
  Weight: 72 kg

DRUGS (5)
  1. ALEVE CAPLET/TABLET,MIDOL EXTENDED RELIEF CAPLET [Suspect]
     Indication: PAIN
     Dosage: Other Frequency
     Route: 048
  2. ALEVE LIQUID GELS [Suspect]
     Dosage: UNK
     Dates: start: 2007
  3. ALEVE LIQUID GELS [Suspect]
     Dosage: 4 DF, QID
     Route: 048
     Dates: start: 2011
  4. ALTRAN [Concomitant]
  5. 3 DIFFERENT INHALERS [Concomitant]
     Indication: ASTHMA

REACTIONS (1)
  - Pain [None]
